FAERS Safety Report 4296148-5 (Version None)
Quarter: 2004Q1

REPORT INFORMATION
  Report Type: 
  Country: None (occurrence: None)
  Receive Date: 20040217
  Receipt Date: 20030829
  Transmission Date: 20041129
  Serious: No
  Sender: FDA-Public Use
  Company Number: US-GLAXOSMITHKLINE-A0424134A

PATIENT
  Age: 72 Year
  Sex: Female

DRUGS (9)
  1. LAMICTAL [Suspect]
     Indication: BIPOLAR DISORDER
     Dosage: 200MG PER DAY
     Route: 048
  2. PRAVACHOL [Concomitant]
  3. ACIPHEX [Concomitant]
  4. ASPIRIN [Concomitant]
  5. PAXIL [Concomitant]
  6. HYDROCHLOROTHIAZIDE [Concomitant]
  7. CLOTRIMAZOLE [Concomitant]
  8. OMEGA 3 [Concomitant]
  9. MULTI-VITAMIN [Concomitant]

REACTIONS (1)
  - RASH [None]
